FAERS Safety Report 4700159-2 (Version None)
Quarter: 2005Q2

REPORT INFORMATION
  Report Type: 
  Country: None (occurrence: None)
  Receive Date: 20050627
  Receipt Date: 20050620
  Transmission Date: 20051028
  Serious: Yes (Death, Life-Threatening)
  Sender: FDA-Public Use
  Company Number: DE-JNJFOC-20050606009

PATIENT
  Sex: Female
  Weight: 59 kg

DRUGS (7)
  1. INFLIXIMAB [Suspect]
     Route: 042
  2. INFLIXIMAB [Suspect]
     Route: 042
  3. INFLIXIMAB [Suspect]
     Indication: CROHN'S DISEASE
     Route: 042
  4. AZATHIOPRINE [Suspect]
     Indication: CROHN'S DISEASE
     Dosage: 125 (TOTAL/D) 2.5 1X/D
     Route: 065
  5. PREDNISOLONE [Suspect]
     Indication: CROHN'S DISEASE
     Dosage: 5 (TOTAL/D) 1 1X1/D
     Route: 065
  6. ALENDRONATE [Concomitant]
     Indication: OSTEOPOROSIS
     Route: 065
  7. VITAMIN D [Concomitant]
     Indication: OSTEOPOROSIS
     Route: 065

REACTIONS (6)
  - ABSCESS [None]
  - FISTULA [None]
  - MULTI-ORGAN FAILURE [None]
  - PNEUMONIA [None]
  - SEPSIS [None]
  - SEPTIC SHOCK [None]
